FAERS Safety Report 7179039-1 (Version None)
Quarter: 2010Q4

REPORT INFORMATION
  Report Type: 
  Country: None (occurrence: None)
  Receive Date: 20101221
  Receipt Date: 20101209
  Transmission Date: 20110411
  Serious: Yes (Hospitalization)
  Sender: FDA-Public Use
  Company Number: US-ELI_LILLY_AND_COMPANY-US201012002970

PATIENT
  Age: 35 Year
  Sex: Male

DRUGS (4)
  1. STRATTERA [Suspect]
     Indication: ATTENTION DEFICIT/HYPERACTIVITY DISORDER
     Dosage: 80 MG, UNK
  2. STRATTERA [Suspect]
     Dosage: 40 MG, UNK
  3. ALLEGRA [Concomitant]
  4. ANTIDEPRESSANTS [Concomitant]

REACTIONS (3)
  - ALCOHOL ABUSE [None]
  - DEPRESSION [None]
  - SUICIDAL BEHAVIOUR [None]
